FAERS Safety Report 24624211 (Version 1)
Quarter: 2024Q4

REPORT INFORMATION
  Report Type: Spontaneous
  Country: US (occurrence: None)
  Receive Date: 20241115
  Receipt Date: 20241115
  Transmission Date: 20250115
  Serious: Yes (Hospitalization)
  Sender: Public
  Company Number: None

PATIENT
  Age: 3 Year
  Sex: Female
  Weight: 16.7 kg

DRUGS (2)
  1. METHOTREXATE [Suspect]
     Active Substance: METHOTREXATE
     Dates: end: 20241104
  2. VINCRISTINE SULFATE [Suspect]
     Active Substance: VINCRISTINE SULFATE
     Dates: end: 20241104

REACTIONS (4)
  - Mucosal inflammation [None]
  - Stomatitis [None]
  - Respiratory symptom [None]
  - Fluid intake reduced [None]

NARRATIVE: CASE EVENT DATE: 20241109
